FAERS Safety Report 5586400-5 (Version None)
Quarter: 2008Q1

REPORT INFORMATION
  Report Type: 
  Country: None (occurrence: None)
  Receive Date: 20080107
  Receipt Date: 20080107
  Transmission Date: 20080703
  Serious: Yes (Death, Hospitalization)
  Sender: FDA-Public Use
  Company Number: None

PATIENT
  Sex: Male
  Weight: 89.5 kg

DRUGS (9)
  1. TEMOZOLOMIDE [Suspect]
     Dosage: 4515 MG
  2. CELEBREX [Concomitant]
  3. DEXAMETHASONE TAB [Concomitant]
  4. PREVACID [Concomitant]
  5. TAGAMET [Concomitant]
  6. CALCITRIOL [Concomitant]
  7. CHLOROQUINE PHOSPHATE [Concomitant]
  8. ENALAPRIL MALEATE [Concomitant]
  9. VITRIN [Concomitant]

REACTIONS (4)
  - DISSEMINATED INTRAVASCULAR COAGULATION [None]
  - PNEUMOCYSTIS JIROVECI PNEUMONIA [None]
  - SEPSIS [None]
  - THROMBOCYTOPENIA [None]
